FAERS Safety Report 4661808-0 (Version None)
Quarter: 2005Q2

REPORT INFORMATION
  Report Type: 
  Country: None (occurrence: None)
  Receive Date: 20050512
  Receipt Date: 20050512
  Transmission Date: 20051028
  Serious: Yes (Life-Threatening)
  Sender: FDA-Public Use
  Company Number: None

PATIENT
  Age: 73 Year
  Sex: Male

DRUGS (5)
  1. CHLORHEXIDINE/ SILVER SULFADIAZINE CATHETER [Suspect]
     Dates: start: 20050111
  2. MAGNESIUM SULFATE [Concomitant]
  3. HEPARIN [Concomitant]
  4. LOPRESSOR [Concomitant]
  5. INSULIN [Concomitant]

REACTIONS (7)
  - BLOOD PRESSURE DECREASED [None]
  - FEELING HOT [None]
  - HEART RATE DECREASED [None]
  - HYPERHIDROSIS [None]
  - LOSS OF CONSCIOUSNESS [None]
  - PROCEDURAL COMPLICATION [None]
  - THERAPY NON-RESPONDER [None]
